FAERS Safety Report 7808184-X (Version None)
Quarter: 2011Q4

REPORT INFORMATION
  Report Type: 
  Country: None (occurrence: None)
  Receive Date: 20111011
  Receipt Date: 20110929
  Transmission Date: 20120403
  Serious: Yes (Hospitalization)
  Sender: FDA-Public Use
  Company Number: US-GILEAD-2011-0043739

PATIENT

DRUGS (12)
  1. CREON [Concomitant]
     Indication: PANCREATIC INSUFFICIENCY
     Route: 055
     Dates: start: 20100503
  2. ADVAIR DISKUS 100/50 [Concomitant]
     Indication: CYSTIC FIBROSIS LUNG
     Route: 055
     Dates: start: 20100503
  3. ALBUTEROL [Concomitant]
     Indication: CYSTIC FIBROSIS LUNG
     Route: 055
     Dates: start: 20070101
  4. AZTREONAM [Suspect]
     Indication: CYSTIC FIBROSIS
     Route: 055
     Dates: start: 20110902
  5. AQUADEKS [Concomitant]
     Indication: MEDICAL DIET
     Route: 055
     Dates: start: 20040101
  6. CIPROFLOXACIN [Concomitant]
  7. PULMOZYME [Concomitant]
     Indication: CYSTIC FIBROSIS LUNG
     Route: 055
     Dates: start: 20040101
  8. VEST THERAPY [Concomitant]
     Indication: CYSTIC FIBROSIS LUNG
     Route: 055
     Dates: start: 19970101
  9. AZITHROMYCIN [Concomitant]
     Route: 055
  10. TOBRAMYCIN [Concomitant]
  11. VITAMIN D [Concomitant]
     Indication: MEDICAL DIET
     Route: 055
     Dates: start: 20100727
  12. NEXIUM [Concomitant]
     Indication: PANCREATIC INSUFFICIENCY
     Route: 055
     Dates: start: 20100720

REACTIONS (1)
  - LUNG DISORDER [None]
